FAERS Safety Report 24114534 (Version 1)
Quarter: 2024Q3

REPORT INFORMATION
  Report Type: Spontaneous
  Country: US (occurrence: US)
  Receive Date: 20240720
  Receipt Date: 20240720
  Transmission Date: 20241017
  Serious: No
  Sender: JOHNSON AND JOHNSON
  Company Number: US-JNJFOC-20240667766

PATIENT
  Age: 69 Year
  Sex: Male

DRUGS (3)
  1. TYLENOL [Suspect]
     Active Substance: ACETAMINOPHEN
     Indication: Product used for unknown indication
     Route: 065
  2. BENADRYL [Suspect]
     Active Substance: DIPHENHYDRAMINE HYDROCHLORIDE
     Indication: Product used for unknown indication
     Route: 065
  3. LEQEMBI [Concomitant]
     Active Substance: LECANEMAB-IRMB
     Indication: Product used for unknown indication
     Dosage: 500 MG/5 ML (100 MG/ML)
     Route: 065

REACTIONS (1)
  - Somnolence [Unknown]
